FAERS Safety Report 18771489 (Version 1)
Quarter: 2021Q1

REPORT INFORMATION
  Report Type: Spontaneous
  Country: US (occurrence: US)
  Receive Date: 20210121
  Receipt Date: 20210121
  Transmission Date: 20210419
  Serious: No
  Sender: FDA-Public Use
  Company Number: US-PERRIGO-20US012763

PATIENT
  Age: 54 Year
  Sex: Female
  Weight: 129.25 kg

DRUGS (5)
  1. IBUPROFEN. [Suspect]
     Active Substance: IBUPROFEN
     Indication: ABDOMINAL PAIN UPPER
     Dosage: 400 MG, SINGLE
     Route: 048
     Dates: start: 20200823, end: 20200823
  2. MIRAPEX [Concomitant]
     Active Substance: PRAMIPEXOLE DIHYDROCHLORIDE
     Indication: RESTLESS LEGS SYNDROME
     Dosage: UNK, UNK
     Route: 048
  3. LISINOPRIL. [Concomitant]
     Active Substance: LISINOPRIL
     Indication: HYPERTENSION
     Dosage: UNK, UNK
     Route: 048
  4. CLONIDINE. [Concomitant]
     Active Substance: CLONIDINE
     Indication: HYPERTENSION
     Dosage: UNK, UNK
     Route: 048
  5. METFORMIN [Concomitant]
     Active Substance: METFORMIN HYDROCHLORIDE
     Indication: DIABETES MELLITUS
     Dosage: UNK, UNK
     Route: 048

REACTIONS (3)
  - Off label use [Recovered/Resolved]
  - Condition aggravated [Recovered/Resolved]
  - Nausea [Recovered/Resolved]

NARRATIVE: CASE EVENT DATE: 20200823
